FAERS Safety Report 7427943-9 (Version None)
Quarter: 2011Q2

REPORT INFORMATION
  Report Type: 
  Country: None (occurrence: None)
  Receive Date: 20110421
  Receipt Date: 20110413
  Transmission Date: 20111010
  Serious: Yes (Other)
  Sender: FDA-Public Use
  Company Number: JP-ASTELLAS-2011JP002226

PATIENT
  Sex: Female
  Weight: 7.21 kg

DRUGS (1)
  1. PROGRAF [Suspect]
     Indication: LIVER TRANSPLANT
     Dosage: 1.4 MG, UNKNOWN/D
     Route: 041
     Dates: start: 20110311, end: 20110324

REACTIONS (2)
  - HETEROPHORIA [None]
  - TREMOR [None]
